FAERS Safety Report 19944354 (Version 1)
Quarter: 2021Q4

REPORT INFORMATION
  Report Type: Spontaneous
  Country: US (occurrence: US)
  Receive Date: 20211008
  Receipt Date: 20211008
  Transmission Date: 20220303
  Serious: Yes (Hospitalization)
  Sender: FDA-Public Use
  Company Number: None

PATIENT
  Age: 58 Year
  Sex: Female

DRUGS (1)
  1. HUMIRA [Suspect]
     Active Substance: ADALIMUMAB
     Indication: Crohn^s disease
     Route: 058
     Dates: start: 20180614

REACTIONS (4)
  - Fatigue [None]
  - Dyspnoea [None]
  - Neoplasm malignant [None]
  - Therapy interrupted [None]

NARRATIVE: CASE EVENT DATE: 20210901
